FAERS Safety Report 7800399-X (Version None)
Quarter: 2011Q4

REPORT INFORMATION
  Report Type: 
  Country: None (occurrence: None)
  Receive Date: 20111006
  Receipt Date: 20110928
  Transmission Date: 20120403
  Serious: Yes (Other)
  Sender: FDA-Public Use
  Company Number: US-JNJFOC-20110912216

PATIENT
  Sex: Female

DRUGS (1)
  1. ORTHO EVRA [Suspect]
     Indication: PRODUCT USED FOR UNKNOWN INDICATION
     Route: 062
     Dates: start: 20110919, end: 20110928

REACTIONS (9)
  - DEPRESSION [None]
  - NAUSEA [None]
  - FATIGUE [None]
  - CYSTITIS [None]
  - PARAESTHESIA [None]
  - HOT FLUSH [None]
  - BURNING SENSATION [None]
  - TREATMENT NONCOMPLIANCE [None]
  - HEADACHE [None]
